FAERS Safety Report 24451377 (Version 1)
Quarter: 2024Q4

REPORT INFORMATION
  Report Type: Spontaneous
  Country: US (occurrence: US)
  Receive Date: 20241017
  Receipt Date: 20241017
  Transmission Date: 20250114
  Serious: Yes (Other)
  Sender: ELI LILLY AND COMPANY
  Company Number: US-ELI_LILLY_AND_COMPANY-US202410007504

PATIENT
  Age: 78 Year
  Sex: Male

DRUGS (3)
  1. ERBITUX [Suspect]
     Active Substance: CETUXIMAB
     Indication: Skin squamous cell carcinoma metastatic
     Dosage: 350 MG, WEEKLY (1/W)
     Route: 042
     Dates: start: 201910
  2. ERBITUX [Suspect]
     Active Substance: CETUXIMAB
     Dosage: 350 MG, OTHER (EVERY 3 WEEKS)
     Route: 042
  3. ERBITUX [Suspect]
     Active Substance: CETUXIMAB
     Dosage: 350 MG, OTHER (EVERY 4 WEEKS)
     Route: 042

REACTIONS (10)
  - Melanoma recurrent [Unknown]
  - Neuropathy peripheral [Unknown]
  - Photosensitivity reaction [Unknown]
  - Muscle spasms [Unknown]
  - Drug-disease interaction [Unknown]
  - Off label use [Unknown]
  - Mucosal infection [Unknown]
  - Acne [Unknown]
  - Rash [Unknown]
  - Dry skin [Unknown]

NARRATIVE: CASE EVENT DATE: 20241005
